FAERS Safety Report 9108773 (Version 2)
Quarter: 2013Q1

REPORT INFORMATION
  Report Type: Spontaneous
  Country: US (occurrence: US)
  Receive Date: 20130222
  Receipt Date: 20130325
  Transmission Date: 20140127
  Serious: Yes (Other)
  Sender: FDA-Public Use
  Company Number: PHHY2013US017323

PATIENT
  Age: 59 Year
  Sex: Female

DRUGS (4)
  1. BUFFERIN [Suspect]
     Indication: PROPHYLAXIS
     Dosage: 1 DF, QD
     Route: 048
  2. BUFFERIN [Suspect]
     Indication: ANTICOAGULANT THERAPY
     Dosage: 1 DF, BIW
     Route: 048
     Dates: end: 20130218
  3. NEXIUM [Concomitant]
     Indication: BURN OESOPHAGEAL
  4. NEXIUM [Concomitant]
     Indication: GASTRIC PH

REACTIONS (4)
  - Intentional self-injury [Recovered/Resolved]
  - Haemorrhagic diathesis [Recovered/Resolved]
  - Expired drug administered [Unknown]
  - Incorrect drug administration duration [Unknown]
